FAERS Safety Report 10051022 (Version 3)
Quarter: 2014Q2

REPORT INFORMATION
  Report Type: Report from Study
  Country: US (occurrence: US)
  Receive Date: 20140401
  Receipt Date: 20140521
  Transmission Date: 20141212
  Serious: Yes (Other)
  Sender: FDA-Public Use
  Company Number: US-ABBVIE-14P-163-1216268-00

PATIENT
  Age: 61 Year
  Sex: Female

DRUGS (5)
  1. HUMIRA [Suspect]
     Indication: PSORIATIC ARTHROPATHY
     Dates: start: 2006, end: 2009
  2. HUMIRA [Suspect]
     Indication: PSORIATIC ARTHROPATHY
     Dates: start: 20140221
  3. REMICADE [Suspect]
     Indication: PSORIATIC ARTHROPATHY
     Dates: start: 2009
  4. METHOTREXATE [Concomitant]
     Indication: PRODUCT USED FOR UNKNOWN INDICATION
  5. TRAMADOL [Concomitant]
     Indication: PRODUCT USED FOR UNKNOWN INDICATION

REACTIONS (12)
  - Uveitis [Not Recovered/Not Resolved]
  - Eye pain [Not Recovered/Not Resolved]
  - Visual acuity reduced [Not Recovered/Not Resolved]
  - Visual field defect [Not Recovered/Not Resolved]
  - Psoriasis [Not Recovered/Not Resolved]
  - Arthritis [Not Recovered/Not Resolved]
  - Injection site pain [Not Recovered/Not Resolved]
  - Device issue [Unknown]
  - Injection site reaction [Recovered/Resolved]
  - Injection site haemorrhage [Recovered/Resolved]
  - Iritis [Not Recovered/Not Resolved]
  - Wrong technique in drug usage process [Unknown]
